FAERS Safety Report 7898081-6 (Version None)
Quarter: 2011Q4

REPORT INFORMATION
  Report Type: 
  Country: None (occurrence: None)
  Receive Date: 20111107
  Receipt Date: 20111101
  Transmission Date: 20120403
  Serious: Yes (Hospitalization)
  Sender: FDA-Public Use
  Company Number: US-PFIZER INC-2011266958

PATIENT
  Age: 64 Year
  Sex: Female
  Weight: 92.27 kg

DRUGS (2)
  1. REMODULIN [Suspect]
     Indication: PULMONARY ARTERIAL HYPERTENSION
     Dosage: UNK
     Route: 042
     Dates: start: 20110404
  2. REVATIO [Suspect]
     Dosage: UNK

REACTIONS (1)
  - URINARY TRACT INFECTION [None]
